FAERS Safety Report 10592454 (Version 3)
Quarter: 2014Q4

REPORT INFORMATION
  Report Type: Spontaneous
  Country: JP (occurrence: JP)
  Receive Date: 20141119
  Receipt Date: 20141219
  Transmission Date: 20150529
  Serious: Yes (Hospitalization)
  Sender: FDA-Public Use
  Company Number: PHHY2014JP148911

PATIENT
  Age: 25 Year
  Sex: Male

DRUGS (2)
  1. CICLOSPORIN [Suspect]
     Active Substance: CYCLOSPORINE
     Indication: NEPHROTIC SYNDROME
     Dosage: 150 MG, QD
     Route: 048
  2. PREDNISOLONE. [Suspect]
     Active Substance: PREDNISOLONE
     Indication: NEPHROTIC SYNDROME
     Dosage: 22.5 MG, QD
     Route: 048

REACTIONS (11)
  - Encephalopathy [Recovered/Resolved]
  - Hyponatraemia [Recovered/Resolved]
  - Altered state of consciousness [Recovering/Resolving]
  - Influenza [Recovering/Resolving]
  - Reflexes abnormal [Unknown]
  - Headache [Recovering/Resolving]
  - Myoclonus [Recovered/Resolved]
  - Central nervous system lesion [Recovered/Resolved]
  - Muscle twitching [Recovering/Resolving]
  - Dyskinesia [Recovering/Resolving]
  - Pyrexia [Recovering/Resolving]

NARRATIVE: CASE EVENT DATE: 201402
